FAERS Safety Report 9522882 (Version 1)
Quarter: 2013Q3

REPORT INFORMATION
  Report Type: Spontaneous
  Country: CA (occurrence: None)
  Receive Date: 20130911
  Receipt Date: 20130911
  Transmission Date: 20140515
  Serious: Yes (Other)
  Sender: FDA-Public Use
  Company Number: AECAN201200521

PATIENT
  Age: 68 Year
  Sex: Female
  Weight: 63 kg

DRUGS (2)
  1. GAMUNEX (IMMUNE GLOBULIN IV (HUMAN), CAPRYLATE/CHROMATOGRAPHY PURIFIED) (10 PCT) [Suspect]
     Indication: STEVENS-JOHNSON SYNDROME
     Route: 042
     Dates: start: 20120927, end: 20121005
  2. IGIVNEX [Suspect]
     Indication: STEVENS-JOHNSON SYNDROME
     Route: 042
     Dates: start: 20121005, end: 20121005

REACTIONS (2)
  - Haemolysis [None]
  - Infusion related reaction [None]
